FAERS Safety Report 8454380-0 (Version None)
Quarter: 2012Q2

REPORT INFORMATION
  Report Type: 
  Country: None (occurrence: None)
  Receive Date: 20120621
  Receipt Date: 20120609
  Transmission Date: 20120825
  Serious: Yes (Other)
  Sender: FDA-Public Use
  Company Number: US-PAR PHARMACEUTICAL, INC-2012SCPR004448

PATIENT

DRUGS (1)
  1. MEGESTROL ACETATE [Suspect]
     Indication: MALNUTRITION
     Dosage: 40 MG, TWICE A DAY
     Route: 048
     Dates: start: 20120517, end: 20120526

REACTIONS (1)
  - DEEP VEIN THROMBOSIS [None]
